FAERS Safety Report 6299414-7 (Version None)
Quarter: 2009Q3

REPORT INFORMATION
  Report Type: 
  Country: None (occurrence: None)
  Receive Date: 20090806
  Receipt Date: 20090722
  Transmission Date: 20100115
  Serious: Yes (Other)
  Sender: FDA-Public Use
  Company Number: B0587406A

PATIENT
  Age: 64 Year
  Sex: Male

DRUGS (6)
  1. NICORETTE [Suspect]
     Route: 002
  2. ASCORBIC ACID [Concomitant]
     Indication: VITAMIN SUPPLEMENTATION
  3. ZINC [Concomitant]
     Indication: VITAMIN SUPPLEMENTATION
  4. FISH OIL [Concomitant]
     Indication: VITAMIN SUPPLEMENTATION
  5. GARLIC [Concomitant]
     Indication: VITAMIN SUPPLEMENTATION
  6. MULTI-VITAMIN [Concomitant]
     Indication: VITAMIN SUPPLEMENTATION

REACTIONS (8)
  - FACIAL PAIN [None]
  - GINGIVAL PAIN [None]
  - GINGIVAL RECESSION [None]
  - GINGIVAL SWELLING [None]
  - GINGIVAL ULCERATION [None]
  - LYMPHADENOPATHY [None]
  - OSTEONECROSIS [None]
  - PRIMARY SEQUESTRUM [None]
